FAERS Safety Report 24719751 (Version 1)
Quarter: 2024Q4

REPORT INFORMATION
  Report Type: Spontaneous
  Country: JP (occurrence: JP)
  Receive Date: 20241211
  Receipt Date: 20241211
  Transmission Date: 20250115
  Serious: Yes (Death, Other)
  Sender: MERCK
  Company Number: JP-MSD-2412JPN000401J

PATIENT
  Age: 68 Year
  Sex: Female
  Weight: 50 kg

DRUGS (5)
  1. KEYTRUDA [Suspect]
     Active Substance: PEMBROLIZUMAB
     Indication: Lung adenocarcinoma
     Dosage: UNK
     Route: 065
  2. ABRAXANE [Suspect]
     Active Substance: PACLITAXEL
     Indication: Lung adenocarcinoma
     Dosage: 140 MILLIGRAM
     Route: 041
     Dates: start: 20240110, end: 20240402
  3. CISPLATIN [Suspect]
     Active Substance: CISPLATIN
     Indication: Lung adenocarcinoma
     Dosage: UNK
     Route: 065
  4. PEMETREXED DISODIUM HEMIPENTAHYDRATE [Suspect]
     Active Substance: PEMETREXED DISODIUM HEMIPENTAHYDRATE
     Indication: Lung adenocarcinoma
     Dosage: UNK
     Route: 065
  5. OSIMERTINIB [Suspect]
     Active Substance: OSIMERTINIB
     Indication: Lung adenocarcinoma
     Dosage: 80 MILLIGRAM
     Route: 048
     Dates: start: 20240621, end: 20240703

REACTIONS (1)
  - Interstitial lung disease [Fatal]

NARRATIVE: CASE EVENT DATE: 20240703
